FAERS Safety Report 6963554-7 (Version None)
Quarter: 2010Q3

REPORT INFORMATION
  Report Type: 
  Country: None (occurrence: None)
  Receive Date: 20100902
  Receipt Date: 20100820
  Transmission Date: 20110219
  Serious: Yes (Other)
  Sender: FDA-Public Use
  Company Number: ES-ELI_LILLY_AND_COMPANY-ES201008006222

PATIENT
  Sex: Female
  Weight: 62 kg

DRUGS (10)
  1. FORTEO [Suspect]
     Indication: OSTEOPOROSIS
     Dosage: 20 UG, DAILY (1/D)
     Route: 058
     Dates: start: 20090225
  2. LEXATIN [Concomitant]
     Indication: ANXIETY
     Dosage: 1 AND HALF I N MORNING AND 3 AT NIGHT
     Route: 048
  3. DOLPRONE [Concomitant]
     Indication: FIBROMYALGIA
     Dosage: UNK, DAILY (1/D)
     Route: 048
  4. PACATAL [Concomitant]
     Indication: FIBROMYALGIA
     Dosage: UNK, DAILY (1/D)
     Route: 048
  5. AMITRIPTYLINE HCL [Concomitant]
     Dosage: UNK, UNKNOWN
     Route: 048
  6. CALCIUM-SANDOZ FORTE [Concomitant]
     Indication: MINERAL SUPPLEMENTATION
     Dosage: UNK, 2/D
     Route: 048
  7. RINO EBASTEL [Concomitant]
     Indication: RHINITIS ALLERGIC
     Dosage: UNK, DAILY (1/D)
     Route: 048
  8. TRANKIMAZIN [Concomitant]
     Indication: ANXIETY
     Dosage: UNK, DAILY (1/D)
     Route: 048
  9. CORIPEN [Concomitant]
     Indication: HYPERSENSITIVITY
     Dosage: 1 DROP BOTH EYES/24H
     Route: 061
  10. LIQUIFILM LARM [Concomitant]
     Indication: HYPERSENSITIVITY
     Dosage: 1 DROP IN BOTH EYES/8H
     Route: 061

REACTIONS (1)
  - PATHOLOGICAL FRACTURE [None]
